FAERS Safety Report 8571231-4 (Version None)
Quarter: 2012Q3

REPORT INFORMATION
  Report Type: 
  Country: None (occurrence: None)
  Receive Date: 20120730
  Receipt Date: 20120730
  Transmission Date: 20120928
  Serious: Yes (Life-Threatening)
  Sender: FDA-Public Use
  Company Number: None

PATIENT
  Age: 78 Year
  Sex: Male
  Weight: 83.5 kg

DRUGS (2)
  1. HYDROMORPHONE HYDROCHLORIDE [Suspect]
     Indication: PAIN
     Dosage: 0.2 MG ONCE, IV
     Route: 042
     Dates: start: 20120713, end: 20120714
  2. ACETAMINOPHEN/HYDROCODONE BITARTRATE [Suspect]
     Dosage: 2 TAB ONCE, PO
     Route: 048
     Dates: start: 20120713, end: 20120714

REACTIONS (7)
  - SEDATION [None]
  - RESPIRATORY DEPRESSION [None]
  - CHILLS [None]
  - HYPOXIA [None]
  - RESPIRATORY ACIDOSIS [None]
  - UNRESPONSIVE TO STIMULI [None]
  - SINUS TACHYCARDIA [None]
